FAERS Safety Report 6371211-3 (Version None)
Quarter: 2009Q3

REPORT INFORMATION
  Report Type: 
  Country: None (occurrence: None)
  Receive Date: 20090922
  Receipt Date: 20090922
  Transmission Date: 20100115
  Serious: No
  Sender: FDA-Public Use
  Company Number: None

PATIENT
  Age: 66 Year
  Sex: Male
  Weight: 108.8633 kg

DRUGS (1)
  1. COMPOUNDING HYALORONIDASE - COMPOUNDED 150 M/ML [Suspect]
     Indication: LOCAL ANAESTHESIA
     Dosage: NOT DOCUMENTED USUAL DOSE .2-.3 CC PERIBULBAR EYE BLOCK
     Dates: start: 20090831

REACTIONS (1)
  - PERIORBITAL CELLULITIS [None]
